FAERS Safety Report 15665619 (Version 2)
Quarter: 2018Q4

REPORT INFORMATION
  Report Type: Spontaneous
  Country: BR (occurrence: BR)
  Receive Date: 20181128
  Receipt Date: 20181207
  Transmission Date: 20190205
  Serious: No
  Sender: FDA-Public Use
  Company Number: BR-NOVOPROD-634850

PATIENT
  Age: 42 Year
  Sex: Female
  Weight: 71 kg

DRUGS (1)
  1. SAXENDA [Suspect]
     Active Substance: LIRAGLUTIDE
     Indication: WEIGHT CONTROL
     Dosage: 1.2 MG
     Route: 065
     Dates: start: 201709

REACTIONS (1)
  - Product storage error [Unknown]
